FAERS Safety Report 4405629-2 (Version None)
Quarter: 2004Q3

REPORT INFORMATION
  Report Type: 
  Country: None (occurrence: None)
  Receive Date: 20040723
  Receipt Date: 20031022
  Transmission Date: 20050211
  Serious: No
  Sender: FDA-Public Use
  Company Number: US-GLAXOSMITHKLINE-A0431189A

PATIENT
  Sex: Female

DRUGS (5)
  1. AVANDIA [Suspect]
     Dosage: 2MG TWICE PER DAY
     Route: 048
  2. ALBUTEROL [Concomitant]
  3. FLOVENT [Concomitant]
  4. ATROVENT [Concomitant]
  5. SYNTHROID [Concomitant]

REACTIONS (2)
  - FATIGUE [None]
  - HYPERGLYCAEMIA [None]
